FAERS Safety Report 5612913-3 (Version None)
Quarter: 2008Q1

REPORT INFORMATION
  Report Type: 
  Country: None (occurrence: None)
  Receive Date: 20080204
  Receipt Date: 20080128
  Transmission Date: 20080703
  Serious: Yes (Death)
  Sender: FDA-Public Use
  Company Number: CA-BOEHRINGER INGELHEIM GMBH, GERMANY-2008-DE-00526GD

PATIENT
  Age: 82 Year
  Sex: Male

DRUGS (3)
  1. MORPHINE [Suspect]
     Indication: DYSPNOEA
  2. BRONCHODILATORS [Concomitant]
     Indication: CHRONIC OBSTRUCTIVE PULMONARY DISEASE
     Route: 055
  3. STEROIDS [Concomitant]
     Indication: CHRONIC OBSTRUCTIVE PULMONARY DISEASE
     Route: 048

REACTIONS (7)
  - CONSTIPATION [None]
  - DEATH [None]
  - DEHYDRATION [None]
  - DELIRIUM [None]
  - NEUROTOXICITY [None]
  - SEPSIS [None]
  - VOMITING [None]
